FAERS Safety Report 20865855 (Version 1)
Quarter: 2022Q2

REPORT INFORMATION
  Report Type: Spontaneous
  Country: US (occurrence: None)
  Receive Date: 20220523
  Receipt Date: 20220523
  Transmission Date: 20220721
  Serious: No
  Sender: FDA-Public Use
  Company Number: None

PATIENT
  Age: 72 Year
  Sex: Male

DRUGS (1)
  1. DABIGATRAN ETEXILATE [Suspect]
     Active Substance: DABIGATRAN ETEXILATE
     Dates: start: 20211201, end: 20211220

REACTIONS (4)
  - Epistaxis [None]
  - Haematemesis [None]
  - Sneezing [None]
  - Therapy interrupted [None]

NARRATIVE: CASE EVENT DATE: 20211217
